FAERS Safety Report 4684883-6 (Version None)
Quarter: 2005Q2

REPORT INFORMATION
  Report Type: 
  Country: None (occurrence: None)
  Receive Date: 20050327
  Receipt Date: 20050329
  Transmission Date: 20051028
  Serious: No
  Sender: FDA-Public Use
  Company Number: PHEH2005US03734

PATIENT
  Age: 53 Year
  Sex: Female

DRUGS (1)
  1. ZELNORM [Suspect]
     Indication: IRRITABLE BOWEL SYNDROME
     Dosage: 2 MG, QD, ORAL
     Route: 048
     Dates: start: 20040801, end: 20041201

REACTIONS (3)
  - CONCOMITANT DISEASE AGGRAVATED [None]
  - HOT FLUSH [None]
  - VOMITING [None]
